FAERS Safety Report 11203252 (Version 2)
Quarter: 2019Q2

REPORT INFORMATION
  Report Type: Spontaneous
  Country: FR (occurrence: FR)
  Receive Date: 20150619
  Receipt Date: 20190614
  Transmission Date: 20190711
  Serious: Yes (Congenital Anomaly, Other)
  Sender: FDA-Public Use
  Company Number: FR-ABBVIE-15P-056-1412101-00

PATIENT
  Sex: Female

DRUGS (1)
  1. DEPAKINE [Suspect]
     Active Substance: VALPROATE SODIUM
     Indication: MATERNAL EXPOSURE TIMING UNSPECIFIED
     Route: 064

REACTIONS (26)
  - Dysmorphism [Unknown]
  - Oversensing [Unknown]
  - Learning disability [Unknown]
  - Hypermobility syndrome [Unknown]
  - Speech disorder developmental [Unknown]
  - Reading disorder [Unknown]
  - Intellectual disability [Unknown]
  - Plagiocephaly [Unknown]
  - Foot deformity [Unknown]
  - Anxiety [Unknown]
  - Foetal exposure during pregnancy [Unknown]
  - Limb malformation [Unknown]
  - Respiratory disorder [Unknown]
  - Attention deficit/hyperactivity disorder [Unknown]
  - Executive dysfunction [Unknown]
  - Psychomotor retardation [Unknown]
  - Communication disorder [Unknown]
  - Autism spectrum disorder [Unknown]
  - Aphasia [Not Recovered/Not Resolved]
  - Prognathism [Unknown]
  - Cognitive disorder [Unknown]
  - Developmental delay [Unknown]
  - Disturbance in attention [Unknown]
  - Learning disorder [Unknown]
  - Emotional disorder [Unknown]
  - Social problem [Unknown]

NARRATIVE: CASE EVENT DATE: 2015
